FAERS Safety Report 18338487 (Version 2)
Quarter: 2020Q4

REPORT INFORMATION
  Report Type: Report from Study
  Country: FR (occurrence: FR)
  Receive Date: 20201002
  Receipt Date: 20201105
  Transmission Date: 20210113
  Serious: Yes (Death)
  Sender: FDA-Public Use
  Company Number: FR-BIOVITRUM-2020FR5160

PATIENT
  Age: 88 Year
  Sex: Male
  Weight: 63 kg

DRUGS (12)
  1. LINEZOLIDE [Concomitant]
     Active Substance: LINEZOLID
     Indication: ANTI-INFECTIVE THERAPY
     Dates: start: 20200922
  2. MENOZEM [Concomitant]
     Indication: ANTI-INFECTIVE THERAPY
     Dates: start: 20200922
  3. BISOPROLOL [Concomitant]
     Active Substance: BISOPROLOL
     Indication: SYMPATHOLYSIS
     Dosage: 2.5 MG
  4. PARACETAMOL [Concomitant]
     Active Substance: ACETAMINOPHEN
     Indication: PAIN
     Dates: start: 20200916
  5. LANSOPRAZOLE. [Concomitant]
     Active Substance: LANSOPRAZOLE
     Indication: GASTROOESOPHAGEAL REFLUX DISEASE
  6. KINERET [Suspect]
     Active Substance: ANAKINRA
     Indication: COVID-19
     Dates: start: 20200922
  7. THERALENE [Concomitant]
     Active Substance: TRIMEPRAZINE
     Indication: ANTIALLERGIC THERAPY
     Dates: start: 20200920
  8. MORPHINE [Concomitant]
     Active Substance: MORPHINE
  9. MIDAZOLAM. [Concomitant]
     Active Substance: MIDAZOLAM
     Indication: SEDATIVE THERAPY
     Dosage: 1.5 MG
     Dates: start: 20200923
  10. FUROSEMIDE. [Concomitant]
     Active Substance: FUROSEMIDE
     Indication: DIURETIC THERAPY
     Dates: start: 20200924
  11. LASILIX [Concomitant]
     Active Substance: FUROSEMIDE
     Indication: DIURETIC THERAPY
  12. LOVENOX [Concomitant]
     Active Substance: ENOXAPARIN SODIUM
     Indication: ANTITHROMBIN III DEFICIENCY
     Dosage: 1200 UI DAILY
     Dates: start: 20200914

REACTIONS (1)
  - Acute respiratory failure [Fatal]

NARRATIVE: CASE EVENT DATE: 20200924
